FAERS Safety Report 14538866 (Version 2)
Quarter: 2018Q2

REPORT INFORMATION
  Report Type: Spontaneous
  Country: US (occurrence: US)
  Receive Date: 20180216
  Receipt Date: 20180620
  Transmission Date: 20180711
  Serious: No
  Sender: FDA-Public Use
  Company Number: US-PFIZER INC-2018065613

PATIENT
  Age: 92 Year
  Sex: Female
  Weight: 90 kg

DRUGS (2)
  1. IBRANCE [Suspect]
     Active Substance: PALBOCICLIB
     Dosage: 100 MG, CYCLIC (D1-21 Q28 DAYS)
     Route: 048
     Dates: start: 20160527
  2. IBRANCE [Suspect]
     Active Substance: PALBOCICLIB
     Indication: BREAST CANCER METASTATIC
     Dosage: 100 MG, CYCLIC (D1-21 Q28 DAYS)
     Route: 048
     Dates: start: 20160527

REACTIONS (3)
  - Nervousness [Unknown]
  - Somnolence [Unknown]
  - Fatigue [Unknown]
